FAERS Safety Report 15633709 (Version 1)
Quarter: 2018Q4

REPORT INFORMATION
  Report Type: Spontaneous
  Country: US (occurrence: US)
  Receive Date: 20181119
  Receipt Date: 20181119
  Transmission Date: 20190205
  Serious: No
  Sender: FDA-Public Use
  Company Number: US-SA-2018SA316873

PATIENT
  Sex: Female

DRUGS (1)
  1. LEFLUNOMIDE WINTHROP [Suspect]
     Active Substance: LEFLUNOMIDE
     Indication: RHEUMATOID ARTHRITIS
     Dosage: 2 DF, QD

REACTIONS (2)
  - Product dose omission [Unknown]
  - Feeling abnormal [Unknown]
